FAERS Safety Report 5298665-8 (Version None)
Quarter: 2007Q2

REPORT INFORMATION
  Report Type: 
  Country: None (occurrence: None)
  Receive Date: 20070409
  Receipt Date: 20070327
  Transmission Date: 20071010
  Serious: Yes (Hospitalization)
  Sender: FDA-Public Use
  Company Number: 237563

PATIENT
  Age: 68 Year
  Sex: Male
  Weight: 72.9 kg

DRUGS (14)
  1. BEVACIZUMAB(BEVACIZUMAB) POWDER AND SOLVENT FOR SOLUTION FOR INFUSION, [Suspect]
     Indication: NON-SMALL CELL LUNG CANCER
     Dosage: 1260 Q3W, INTRAVENOUS
     Route: 042
     Dates: start: 20060329
  2. BEVACIZUMAB(BEVACIZUMAB) POWDER AND SOLVENT FOR SOLUTION FOR INFUSION, [Suspect]
  3. BEVACIZUMAB(BEVACIZUMAB) POWDER AND SOLVENT FOR SOLUTION FOR INFUSION, [Suspect]
  4. BEVACIZUMAB(BEVACIZUMAB) POWDER AND SOLVENT FOR SOLUTION FOR INFUSION, [Suspect]
  5. DOCETAXEL(DOCETAXEL) [Suspect]
     Dosage: 135 MG, Q3W, INTRAVENOUS
     Route: 042
  6. CARBOPLATIN [Suspect]
     Indication: NON-SMALL CELL LUNG CANCER
     Dosage: 460 MG, Q3W, INTRAVENOUS
     Route: 042
     Dates: start: 20060308
  7. LOVASTATIN [Concomitant]
  8. ATENOLOL [Concomitant]
  9. LISINOPRIL [Concomitant]
  10. ASPIRIN [Concomitant]
  11. LANTUS [Concomitant]
  12. HUMALOG [Concomitant]
  13. WARFARIN SODIUM [Concomitant]
  14. DEXAMETHASONE TAB [Concomitant]

REACTIONS (3)
  - CEREBRAL ISCHAEMIA [None]
  - FALL [None]
  - LEUKOENCEPHALOPATHY [None]
